FAERS Safety Report 9695444 (Version 5)
Quarter: 2014Q1

REPORT INFORMATION
  Report Type: Report from Study
  Country: CA (occurrence: CA)
  Receive Date: 20131119
  Receipt Date: 20140313
  Transmission Date: 20141002
  Serious: Yes (Other)
  Sender: FDA-Public Use
  Company Number: PHHY2013CA106840

PATIENT
  Age: 55 Year
  Sex: Female

DRUGS (3)
  1. SANDOSTATIN LAR [Suspect]
     Indication: NEUROENDOCRINE TUMOUR
     Dosage: 30 MG, QMO
     Route: 030
     Dates: start: 20130822
  2. SANDOSTATIN LAR [Suspect]
     Dosage: 30 MG, EVERY 21 DAYS
     Route: 030
  3. SANDOSTATIN LAR [Suspect]
     Dosage: 50 MG, QMO
     Route: 030

REACTIONS (7)
  - Renal cancer [Unknown]
  - Diabetes mellitus [Unknown]
  - Metastases to gastrointestinal tract [Recovering/Resolving]
  - Metastases to breast [Unknown]
  - Disease progression [Unknown]
  - Erythema [Unknown]
  - Breast mass [Unknown]
